FAERS Safety Report 21586934 (Version 1)
Quarter: 2022Q4

REPORT INFORMATION
  Report Type: Spontaneous
  Country: US (occurrence: None)
  Receive Date: 20221110
  Receipt Date: 20221110
  Transmission Date: 20230113
  Serious: No
  Sender: FDA-Public Use
  Company Number: None

PATIENT
  Sex: Male
  Weight: 72.57 kg

DRUGS (9)
  1. CAPECITABINE [Suspect]
     Active Substance: CAPECITABINE
     Indication: Pancreatic carcinoma
     Dosage: OTHER FREQUENCY : 2WKON1WKF;?
     Route: 048
     Dates: start: 202209, end: 202211
  2. ANORO [Concomitant]
  3. ASPIRIN [Concomitant]
  4. ATORVASTATIN [Concomitant]
  5. IRON [Concomitant]
  6. METFORMIN [Concomitant]
     Active Substance: METFORMIN HYDROCHLORIDE
  7. PROAIR HFA [Concomitant]
     Active Substance: ALBUTEROL SULFATE
  8. VIT C + D [Concomitant]
  9. SYNTHROID [Concomitant]

REACTIONS (2)
  - Drug ineffective [None]
  - Disease progression [None]
